FAERS Safety Report 4704133-1 (Version None)
Quarter: 2005Q2

REPORT INFORMATION
  Report Type: 
  Country: None (occurrence: None)
  Receive Date: 20050629
  Receipt Date: 20040705
  Transmission Date: 20051028
  Serious: No
  Sender: FDA-Public Use
  Company Number: 8345

PATIENT
  Age: 54 Year
  Sex: Male

DRUGS (14)
  1. ERYTHROMYCIN [Suspect]
     Dosage: 2 G, IV
     Route: 042
     Dates: start: 20030818
  2. TACROLIMUS [Suspect]
     Dosage: 10 MG
  3. DILTIAZEM HYDROCHLORIDE [Suspect]
     Indication: ESSENTIAL HYPERTENSION
     Dosage: 240 MG, PO
     Dates: end: 20030818
  4. MYCOPHENOLATE MOFETIL [Concomitant]
  5. PREDNISOLONE [Concomitant]
  6. OXYXODONE HYDROCHLORIDE [Concomitant]
  7. WARFARIN [Concomitant]
  8. PANTOPRAZOLE [Concomitant]
  9. AMIODARONE HCL [Concomitant]
  10. SODIUM BICARBONATE [Concomitant]
  11. ALENDORNATE SODUM [Concomitant]
  12. MAGNESIUM ASPARTATE [Concomitant]
  13. GABAPENTIN [Concomitant]
  14. DOTHIEPIN HYDROCHLORIDE [Concomitant]

REACTIONS (4)
  - COMPLICATIONS OF TRANSPLANTED KIDNEY [None]
  - DRUG INTERACTION [None]
  - DRUG TOXICITY [None]
  - RENAL IMPAIRMENT [None]
